FAERS Safety Report 9394562 (Version 3)
Quarter: 2013Q4

REPORT INFORMATION
  Report Type: Report from Study
  Country: BR (occurrence: BR)
  Receive Date: 20130711
  Receipt Date: 20131008
  Transmission Date: 20140711
  Serious: Yes (Death, Hospitalization)
  Sender: FDA-Public Use
  Company Number: PHHY2013BR073353

PATIENT
  Age: 89 Year
  Sex: Male

DRUGS (1)
  1. DIOVAN [Suspect]
     Indication: HYPERTENSION
     Dosage: 1 DF (320 MG), A DAY
     Route: 048

REACTIONS (3)
  - Intestinal haemorrhage [Fatal]
  - Infection [Fatal]
  - Pneumonia [Fatal]
